FAERS Safety Report 6271915-7 (Version None)
Quarter: 2009Q3

REPORT INFORMATION
  Report Type: 
  Country: None (occurrence: None)
  Receive Date: 20090717
  Receipt Date: 20090708
  Transmission Date: 20100115
  Serious: Yes (Other)
  Sender: FDA-Public Use
  Company Number: GB-JNJFOC-20090702753

PATIENT
  Age: 62 Year
  Sex: Female

DRUGS (7)
  1. REMICADE [Suspect]
     Indication: RHEUMATOID ARTHRITIS
     Route: 042
  2. PREDNISOLONE [Concomitant]
  3. CALCICHEW [Concomitant]
  4. GAVISCON [Concomitant]
  5. HYDROXYCHLOROQUINE SULFATE [Concomitant]
  6. NAPROXEN [Concomitant]
  7. TRAMADOL HCL [Concomitant]

REACTIONS (1)
  - LEUKAEMIA [None]
